FAERS Safety Report 14806330 (Version 1)
Quarter: 2018Q2

REPORT INFORMATION
  Report Type: Spontaneous
  Country: US (occurrence: US)
  Receive Date: 20180417
  Receipt Date: 20180417
  Transmission Date: 20180711
  Serious: Yes (Disabling)
  Sender: FDA-Public Use
  Company Number: None

PATIENT
  Age: 81 Year
  Sex: Female
  Weight: 61.23 kg

DRUGS (1)
  1. PROLIA [Suspect]
     Active Substance: DENOSUMAB
     Indication: BONE LOSS
     Dosage: ?          OTHER ROUTE:INJECTION IN BELLY FAT?

REACTIONS (3)
  - Myalgia [None]
  - Asthenia [None]
  - Bone pain [None]

NARRATIVE: CASE EVENT DATE: 20180316
